FAERS Safety Report 8246930-4 (Version None)
Quarter: 2012Q1

REPORT INFORMATION
  Report Type: 
  Country: None (occurrence: None)
  Receive Date: 20120327
  Receipt Date: 20101011
  Transmission Date: 20120608
  Serious: Yes (Death, Hospitalization, Other)
  Sender: FDA-Public Use
  Company Number: IT-021311

PATIENT
  Age: 76 Year
  Sex: Male

DRUGS (2)
  1. (CHLORAMBUCIL) [Suspect]
     Indication: CHRONIC LYMPHOCYTIC LEUKAEMIA
     Dosage: 10 MG/M2 DAYS 1-7 EVERY 28 DAYS, ORAL
     Route: 048
     Dates: start: 20100118
  2. OFATUMUMAB [Suspect]
     Indication: CHRONIC LYMPHOCYTIC LEUKAEMIA
     Dosage: INJECTION, INTRAVENOUS (NOT OTHERWISE SPECIFIED)
     Route: 042
     Dates: start: 20100118

REACTIONS (9)
  - CONDITION AGGRAVATED [None]
  - DYSPNOEA [None]
  - SEPTIC SHOCK [None]
  - HYPOTENSION [None]
  - BRONCHOPNEUMONIA [None]
  - RESPIRATORY FAILURE [None]
  - ASTHENIA [None]
  - MALAISE [None]
  - TROPONIN INCREASED [None]
